FAERS Safety Report 9306244 (Version 2)
Quarter: 2013Q3

REPORT INFORMATION
  Report Type: Spontaneous
  Country: TR (occurrence: TR)
  Receive Date: 20130523
  Receipt Date: 20130813
  Transmission Date: 20140515
  Serious: Yes (Other)
  Sender: FDA-Public Use
  Company Number: TR-CUBIST PHARMACEUTICALS, INC.-2013CBST000407

PATIENT
  Sex: 0

DRUGS (2)
  1. CUBICIN [Suspect]
     Indication: DEVICE RELATED INFECTION
     Dosage: 500 MG, QD
     Route: 042
     Dates: start: 20130429, end: 20130510
  2. CUBICIN [Suspect]
     Indication: OFF LABEL USE

REACTIONS (6)
  - Ecchymosis [Recovered/Resolved]
  - Respiratory distress [Recovered/Resolved]
  - Oedema [Recovered/Resolved]
  - Hypertension [Recovered/Resolved]
  - Tachycardia [Recovered/Resolved]
  - Blood creatine phosphokinase increased [Recovered/Resolved]
